FAERS Safety Report 15860542 (Version 3)
Quarter: 2019Q2

REPORT INFORMATION
  Report Type: Report from Study
  Country: CN (occurrence: CN)
  Receive Date: 20190123
  Receipt Date: 20190522
  Transmission Date: 20190711
  Serious: Yes (Hospitalization)
  Sender: FDA-Public Use
  Company Number: CN-TAKEDA-2019TUS001272

PATIENT
  Age: 23 Year
  Sex: Female
  Weight: 42 kg

DRUGS (4)
  1. VEDOLIZUMAB [Suspect]
     Active Substance: VEDOLIZUMAB
     Indication: CROHN^S DISEASE
     Dosage: 300 MILLIGRAM
     Route: 042
     Dates: start: 20180802
  2. ENSURE [Concomitant]
     Active Substance: AMINO ACIDS\DEXTROSE\ELECTROLYTES NOS\SOYBEAN OIL\VITAMINS
     Indication: CROHN^S DISEASE
     Dosage: 50 MILLIGRAM, BID
     Route: 048
     Dates: start: 201804
  3. METHOTREXATE. [Concomitant]
     Active Substance: METHOTREXATE
     Indication: CROHN^S DISEASE
     Dosage: 20 MILLIGRAM
     Route: 058
     Dates: start: 20180713
  4. HYDROTALCITE [Concomitant]
     Active Substance: HYDROTALCITE
     Indication: ABDOMINAL PAIN UPPER
     Dosage: 1000 MG, TID
     Route: 048
     Dates: start: 20181206, end: 20190110

REACTIONS (1)
  - Crohn^s disease [Recovered/Resolved]

NARRATIVE: CASE EVENT DATE: 20190103
